FAERS Safety Report 5873278-5 (Version None)
Quarter: 2008Q3

REPORT INFORMATION
  Report Type: 
  Country: None (occurrence: None)
  Receive Date: 20080904
  Receipt Date: 20080816
  Transmission Date: 20090109
  Serious: Yes (Hospitalization)
  Sender: FDA-Public Use
  Company Number: ENTC2008-0218

PATIENT
  Sex: Male

DRUGS (6)
  1. STALEVO 100 [Suspect]
     Indication: PARKINSON'S DISEASE
     Dosage: 150MG/37.5MG/200MG
     Dates: start: 20030101, end: 20080501
  2. ALLOPURINOL [Concomitant]
  3. DAONIL [Concomitant]
  4. PRAVASTATIN [Concomitant]
  5. ESOMEPRAZOLE [Concomitant]
  6. NSAID'S [Concomitant]

REACTIONS (7)
  - ANAEMIA [None]
  - FATIGUE [None]
  - HEPATIC CIRRHOSIS [None]
  - HEPATIC FAILURE [None]
  - OESOPHAGEAL VARICES HAEMORRHAGE [None]
  - PORTAL HYPERTENSION [None]
  - SPLENOMEGALY [None]
